FAERS Safety Report 14613076 (Version 1)
Quarter: 2018Q1

REPORT INFORMATION
  Report Type: Spontaneous
  Country: CH (occurrence: CH)
  Receive Date: 20180308
  Receipt Date: 20180308
  Transmission Date: 20180509
  Serious: Yes (Hospitalization, Other)
  Sender: FDA-Public Use
  Company Number: CH-009507513-1802CHE013562

PATIENT
  Age: 0 Year
  Sex: Male
  Weight: 2.6 kg

DRUGS (5)
  1. SERETIDE [Suspect]
     Active Substance: FLUTICASONE PROPIONATE\SALMETEROL XINAFOATE
     Indication: ASTHMA
     Dosage: UNK
     Route: 064
     Dates: start: 2017
  2. SEEBRI BREEZHALER [Suspect]
     Active Substance: GLYCOPYRROLATE
     Indication: ASTHMA
     Dosage: 50 MICROGRAM, UNK
     Route: 064
     Dates: start: 20170920, end: 20170925
  3. CELESTONE CHRONODOSE [Suspect]
     Active Substance: BETAMETHASONE ACETATE\BETAMETHASONE SODIUM PHOSPHATE
     Dosage: UNK
     Route: 064
     Dates: start: 20171019, end: 20171020
  4. ESCITALOPRAM [Suspect]
     Active Substance: ESCITALOPRAM OXALATE
     Dosage: UNK
     Route: 064
     Dates: end: 2017
  5. VENTOLIN [Suspect]
     Active Substance: ALBUTEROL SULFATE
     Indication: ASTHMA
     Dosage: UNK
     Route: 064
     Dates: start: 2017

REACTIONS (5)
  - Premature baby [Recovered/Resolved]
  - Jaundice neonatal [Recovered/Resolved]
  - Poor weight gain neonatal [Recovered/Resolved]
  - Exposure during pregnancy [Recovered/Resolved]
  - Hypothermia neonatal [Recovered/Resolved]

NARRATIVE: CASE EVENT DATE: 20170403
